FAERS Safety Report 14495173 (Version 3)
Quarter: 2018Q4

REPORT INFORMATION
  Report Type: Spontaneous
  Country: US (occurrence: US)
  Receive Date: 20180206
  Receipt Date: 20181221
  Transmission Date: 20190204
  Serious: Yes (Death, Hospitalization)
  Sender: FDA-Public Use
  Company Number: US-ACTELION-A-US2018-167043

PATIENT
  Age: 80 Year
  Sex: Female

DRUGS (1)
  1. OPSUMIT [Suspect]
     Active Substance: MACITENTAN
     Indication: PULMONARY HYPERTENSION
     Dosage: 10 MG, QD
     Route: 048
     Dates: start: 20170605, end: 20181022

REACTIONS (6)
  - Respiratory syncytial virus infection [Unknown]
  - Pneumonia [Unknown]
  - Cough [Unknown]
  - Lung disorder [Fatal]
  - Gastric haemorrhage [Unknown]
  - Pulmonary oedema [Unknown]
